FAERS Safety Report 23139405 (Version 1)
Quarter: 2023Q4

REPORT INFORMATION
  Report Type: Spontaneous
  Country: DE (occurrence: DE)
  Receive Date: 20231102
  Receipt Date: 20231102
  Transmission Date: 20240109
  Serious: Yes (Death, Other)
  Sender: FDA-Public Use
  Company Number: DE-SUN PHARMACEUTICAL INDUSTRIES LTD-2023RR-415743

PATIENT
  Sex: Female
  Weight: 78 kg

DRUGS (4)
  1. GEMCITABINE [Suspect]
     Active Substance: GEMCITABINE
     Indication: Pancreatic carcinoma
     Dosage: 1000 MG/M?
     Route: 040
     Dates: start: 20230612
  2. GEMCITABINE [Suspect]
     Active Substance: GEMCITABINE
     Dosage: 1000 MG/M?
     Route: 040
     Dates: start: 20230626
  3. CAPECITABINE [Suspect]
     Active Substance: CAPECITABINE
     Indication: Pancreatic carcinoma
     Dosage: 1500 MILLIGRAM, UNK
     Route: 048
     Dates: start: 20230612, end: 20230627
  4. CAPECITABINE [Suspect]
     Active Substance: CAPECITABINE
     Indication: Adjuvant therapy

REACTIONS (4)
  - Mucosal inflammation [Fatal]
  - Sepsis [Fatal]
  - Acute hepatic failure [Fatal]
  - Renal failure [Fatal]
